FAERS Safety Report 12810286 (Version 1)
Quarter: 2016Q4

REPORT INFORMATION
  Report Type: Spontaneous
  Country: BR (occurrence: BR)
  Receive Date: 20161005
  Receipt Date: 20161005
  Transmission Date: 20170207
  Serious: Yes (Hospitalization)
  Sender: FDA-Public Use
  Company Number: BR-PFIZER INC-2016418616

PATIENT
  Age: 54 Year
  Sex: Female

DRUGS (1)
  1. SUTENT [Suspect]
     Active Substance: SUNITINIB MALATE
     Dosage: 50 MG, 1X/DAY CYCLIC  (1 CAPSULE PER DAY FOR 2 WEEKS AND INTERRUPT FOR 1 WEEK)
     Route: 048
     Dates: start: 20160910

REACTIONS (2)
  - Neoplasm malignant [Unknown]
  - Product use issue [Unknown]
